FAERS Safety Report 17578487 (Version 1)
Quarter: 2020Q1

REPORT INFORMATION
  Report Type: Report from Study
  Country: GB (occurrence: GB)
  Receive Date: 20200325
  Receipt Date: 20200325
  Transmission Date: 20200409
  Serious: Yes (Other)
  Sender: FDA-Public Use
  Company Number: GB-SUN PHARMACEUTICAL INDUSTRIES LTD-2020R1-241325

PATIENT
  Age: 27 Year
  Sex: Male

DRUGS (1)
  1. PARACETAMOL/CODEINE [Suspect]
     Active Substance: ACETAMINOPHEN\CODEINE PHOSPHATE
     Indication: SUBSTANCE USE
     Dosage: UNK
     Route: 065

REACTIONS (3)
  - Overdose [Unknown]
  - Panic attack [Unknown]
  - Anxiety [Unknown]
